FAERS Safety Report 18015543 (Version 2)
Quarter: 2020Q3

REPORT INFORMATION
  Report Type: Spontaneous
  Country: US (occurrence: US)
  Receive Date: 20200713
  Receipt Date: 20200912
  Transmission Date: 20201103
  Serious: No
  Sender: FDA-Public Use
  Company Number: US-009507513-2007USA003235

PATIENT
  Age: 83 Year
  Sex: Female
  Weight: 42.63 kg

DRUGS (6)
  1. BILBERRY [Concomitant]
     Active Substance: BILBERRY
     Dosage: UNK
  2. GAIA [Concomitant]
     Dosage: UNK
  3. OLIVE [Concomitant]
     Active Substance: GREEN OLIVE
     Dosage: UNK
  4. PYCNOGENOL [Concomitant]
     Active Substance: DIETARY SUPPLEMENT
     Dosage: UNK
  5. CHOLECALCIFEROL [Concomitant]
     Active Substance: CHOLECALCIFEROL
     Dosage: UNK
  6. NEXPLANON [Suspect]
     Active Substance: ETONOGESTREL
     Indication: UTERINE CANCER
     Dosage: 1 IMPLANT (LEFT ARM) / 3 YEARS
     Route: 059
     Dates: start: 20200421

REACTIONS (7)
  - Diarrhoea [Unknown]
  - Hot flush [Unknown]
  - Product use in unapproved indication [Unknown]
  - Vaginal haemorrhage [Not Recovered/Not Resolved]
  - Alopecia [Unknown]
  - Mood swings [Unknown]
  - Product prescribing issue [Unknown]

NARRATIVE: CASE EVENT DATE: 2020
